FAERS Safety Report 4510010-1 (Version None)
Quarter: 2004Q4

REPORT INFORMATION
  Report Type: 
  Country: None (occurrence: None)
  Receive Date: 20041124
  Receipt Date: 20041109
  Transmission Date: 20050328
  Serious: Yes (Hospitalization)
  Sender: FDA-Public Use
  Company Number: AR-ABBOTT-04P-007-0280590-00

PATIENT
  Sex: Male
  Weight: 18.5 kg

DRUGS (3)
  1. KALETRA [Suspect]
     Indication: HIV INFECTION
     Dosage: LOPINAVIR 222 MG/ RITONAVIR 55.5 MG, 2 IN 1 DAY
     Route: 048
     Dates: start: 20040927, end: 20041029
  2. EFAVIRENZ [Concomitant]
     Indication: HIV INFECTION
     Route: 048
     Dates: start: 20040927, end: 20041029
  3. STAVUDINE [Concomitant]
     Indication: HIV INFECTION
     Route: 048
     Dates: start: 20040927, end: 20041029

REACTIONS (4)
  - OEDEMA [None]
  - OEDEMA PERIPHERAL [None]
  - PANCREATITIS [None]
  - PERICARDIAL EFFUSION [None]
